FAERS Safety Report 9239442 (Version 1)
Quarter: 2013Q2

REPORT INFORMATION
  Report Type: Report from Study
  Country: US (occurrence: US)
  Receive Date: 20130418
  Receipt Date: 20130418
  Transmission Date: 20140414
  Serious: Yes (Death, Disabling, Other)
  Sender: FDA-Public Use
  Company Number: US-ROCHE-1208259

PATIENT
  Age: 90 Year
  Sex: Male
  Weight: 61.74 kg

DRUGS (4)
  1. ZELBORAF [Suspect]
     Indication: METASTATIC MALIGNANT MELANOMA
     Route: 048
     Dates: end: 20130328
  2. DILTIAZEM [Concomitant]
     Indication: HYPERTENSION
     Route: 048
  3. LISINOPRIL [Concomitant]
     Indication: HYPERTENSION
     Route: 048
  4. XGEVA [Concomitant]
     Indication: METASTASES TO BONE
     Route: 058
     Dates: start: 20130327

REACTIONS (9)
  - Death [Fatal]
  - Malaise [Not Recovered/Not Resolved]
  - Decreased appetite [Recovered/Resolved]
  - Blister [Recovering/Resolving]
  - Confusional state [Recovered/Resolved]
  - Weight decreased [Unknown]
  - Alopecia [Unknown]
  - Decreased appetite [Not Recovered/Not Resolved]
  - Confusional state [Recovered/Resolved]
